FAERS Safety Report 12749532 (Version 5)
Quarter: 2017Q4

REPORT INFORMATION
  Report Type: Spontaneous
  Country: JP (occurrence: JP)
  Receive Date: 20160916
  Receipt Date: 20171003
  Transmission Date: 20180320
  Serious: Yes (Hospitalization)
  Sender: FDA-Public Use
  Company Number: PHHY2016JP126791

PATIENT
  Age: 73 Year
  Sex: Female

DRUGS (6)
  1. CALNATE [Concomitant]
     Indication: HYPERTENSION
     Dosage: 2.5 MG, QD
     Route: 048
  2. PROHEPARUM [Concomitant]
     Active Substance: CHOLINE BITARTRATE\CYSTEINE\INOSITOL\MAMMAL LIVER
     Indication: HEPATIC FUNCTION ABNORMAL
     Dosage: 1 DF, TID
     Route: 048
  3. PYDOXAL [Concomitant]
     Active Substance: PYRIDOXAL
     Indication: STOMATITIS
     Dosage: 20 MG, TID
     Route: 048
  4. ZOMETA [Suspect]
     Active Substance: ZOLEDRONIC ACID
     Indication: METASTASES TO BONE
     Dosage: 4 MG, UNK
     Route: 042
     Dates: start: 20070514, end: 20090311
  5. XELODA [Concomitant]
     Active Substance: CAPECITABINE
     Indication: BREAST CANCER
     Dosage: 900 MG, BID
     Route: 048
  6. VESICARE [Concomitant]
     Active Substance: SOLIFENACIN SUCCINATE
     Indication: HYPERTONIC BLADDER
     Dosage: 10 MG, QD
     Route: 048

REACTIONS (8)
  - Odynophagia [Unknown]
  - Bone disorder [Not Recovered/Not Resolved]
  - Osteonecrosis of jaw [Not Recovered/Not Resolved]
  - Gingival swelling [Unknown]
  - Osteolysis [Unknown]
  - Bone fistula [Unknown]
  - Exposed bone in jaw [Unknown]
  - Tooth infection [Unknown]

NARRATIVE: CASE EVENT DATE: 20100330
